FAERS Safety Report 8133777-2 (Version None)
Quarter: 2012Q1

REPORT INFORMATION
  Report Type: 
  Country: None (occurrence: None)
  Receive Date: 20120213
  Receipt Date: 20120213
  Transmission Date: 20120608
  Serious: Yes (Life-Threatening, Other)
  Sender: FDA-Public Use
  Company Number: None

PATIENT
  Age: 50 Year
  Sex: Male
  Weight: 95.254 kg

DRUGS (1)
  1. DIAZEPAM [Suspect]
     Indication: MUSCLE SPASMS
     Dosage: 5 MG
     Route: 048
     Dates: start: 20100826, end: 20100923

REACTIONS (7)
  - RESPIRATORY ARREST [None]
  - POST PROCEDURAL HAEMATOMA [None]
  - SLEEP APNOEA SYNDROME [None]
  - AGITATION [None]
  - CONFUSIONAL STATE [None]
  - SOMNAMBULISM [None]
  - EXTRADURAL HAEMATOMA [None]
